FAERS Safety Report 13330760 (Version 2)
Quarter: 2017Q1

REPORT INFORMATION
  Report Type: Report from Study
  Country: US (occurrence: US)
  Receive Date: 20170313
  Receipt Date: 20170327
  Transmission Date: 20170428
  Serious: Yes (Other)
  Sender: FDA-Public Use
  Company Number: US-PFIZER INC-2016543329

PATIENT
  Age: 75 Year
  Sex: Female

DRUGS (2)
  1. IBRANCE [Suspect]
     Active Substance: PALBOCICLIB
     Indication: BREAST CANCER METASTATIC
     Dosage: 125 MG, CYCLIC (ONCE DAILY FOR 21 DAYS OR 7 DAYS OFF)
     Route: 048
     Dates: start: 20161018
  2. LETROZOLE. [Suspect]
     Active Substance: LETROZOLE
     Indication: BREAST CANCER
     Dosage: 2.5 MG, UNK
     Dates: start: 201607

REACTIONS (14)
  - Aphthous ulcer [Recovering/Resolving]
  - Upper respiratory tract congestion [Unknown]
  - Spinal pain [Unknown]
  - Abdominal pain [Unknown]
  - Groin pain [Unknown]
  - Leukopenia [Not Recovered/Not Resolved]
  - Oropharyngeal pain [Unknown]
  - Stomatitis [Recovered/Resolved]
  - Constipation [Unknown]
  - Haematochezia [Unknown]
  - Epistaxis [Recovered/Resolved]
  - Neoplasm progression [Unknown]
  - Thrombocytopenia [Not Recovered/Not Resolved]
  - Fatigue [Not Recovered/Not Resolved]

NARRATIVE: CASE EVENT DATE: 201610
